FAERS Safety Report 7452355-1 (Version None)
Quarter: 2011Q2

REPORT INFORMATION
  Report Type: 
  Country: None (occurrence: None)
  Receive Date: 20110502
  Receipt Date: 20110421
  Transmission Date: 20111010
  Serious: Yes (Other)
  Sender: FDA-Public Use
  Company Number: NL-GILEAD-E2B_00001199

PATIENT
  Sex: Female

DRUGS (10)
  1. COZAAR [Concomitant]
  2. PANTOPRAZOLE [Concomitant]
  3. SPIRONOLACTONE [Concomitant]
     Dates: start: 20100401
  4. METFORMIN [Concomitant]
  5. ALLOPURINOL [Concomitant]
  6. OXAZEPAM [Concomitant]
  7. THYRAX [Concomitant]
     Indication: HYPOTHYROIDISM
  8. AMBRISENTAN [Suspect]
     Indication: PULMONARY HYPERTENSION
     Route: 065
     Dates: start: 20100401
  9. FENPROCOUMON [Concomitant]
  10. EZETIMIBE [Concomitant]
     Route: 048

REACTIONS (2)
  - UPPER-AIRWAY COUGH SYNDROME [None]
  - DEAFNESS [None]
